FAERS Safety Report 8294662-9 (Version None)
Quarter: 2012Q2

REPORT INFORMATION
  Report Type: 
  Country: None (occurrence: None)
  Receive Date: 20120418
  Receipt Date: 20120410
  Transmission Date: 20120825
  Serious: Yes (Hospitalization)
  Sender: FDA-Public Use
  Company Number: JP-ASTELLAS-2011JP009650

PATIENT
  Sex: Male
  Weight: 60 kg

DRUGS (2)
  1. BREDININ [Concomitant]
     Indication: RHEUMATOID ARTHRITIS
     Dosage: 150 MG, UID/QD
     Route: 048
     Dates: start: 20110922
  2. PROGRAF [Suspect]
     Indication: RHEUMATOID ARTHRITIS
     Dosage: 1 MG, UID/QD
     Route: 048
     Dates: start: 20111006

REACTIONS (1)
  - INTESTINAL OBSTRUCTION [None]
